FAERS Safety Report 23648260 (Version 3)
Quarter: 2024Q2

REPORT INFORMATION
  Report Type: Spontaneous
  Country: JP (occurrence: JP)
  Receive Date: 20240319
  Receipt Date: 20240413
  Transmission Date: 20240716
  Serious: Yes (Hospitalization, Other)
  Sender: FDA-Public Use
  Company Number: JP-ARDELYX-2024ARDX000890

PATIENT
  Age: 73 Year
  Sex: Female

DRUGS (4)
  1. TENAPANOR HYDROCHLORIDE [Suspect]
     Active Substance: TENAPANOR HYDROCHLORIDE
     Indication: Product used for unknown indication
     Dosage: 5 MILLIGRAM
     Route: 048
     Dates: start: 20240222, end: 20240229
  2. INSULIN NOS [Concomitant]
     Active Substance: INSULIN NOS
     Indication: Product used for unknown indication
  3. IRON SUCROSE [Concomitant]
     Active Substance: IRON SUCROSE
     Indication: Product used for unknown indication
     Dosage: UNK
     Dates: start: 20230706
  4. MAXACALCITOL [Concomitant]
     Active Substance: MAXACALCITOL
     Indication: Product used for unknown indication

REACTIONS (2)
  - Colitis [Recovering/Resolving]
  - Melaena [Recovered/Resolved]

NARRATIVE: CASE EVENT DATE: 20240305
